FAERS Safety Report 23219075 (Version 2)
Quarter: 2024Q2

REPORT INFORMATION
  Report Type: Spontaneous
  Country: US (occurrence: US)
  Receive Date: 20231122
  Receipt Date: 20240506
  Transmission Date: 20240716
  Serious: Yes (Other)
  Sender: FDA-Public Use
  Company Number: US-NOVOPROD-1105415

PATIENT
  Sex: Female

DRUGS (3)
  1. FIASP [Suspect]
     Active Substance: INSULIN ASPART
     Dosage: UNK (LOWER DOSE)
     Route: 058
  2. FIASP [Suspect]
     Active Substance: INSULIN ASPART
     Indication: Diabetes mellitus
     Dosage: 26 IU, TID
     Route: 058
  3. FIASP [Suspect]
     Active Substance: INSULIN ASPART
     Dosage: UNK
     Route: 058

REACTIONS (16)
  - Drug hypersensitivity [Recovering/Resolving]
  - Hypoacusis [Recovering/Resolving]
  - Fatigue [Unknown]
  - Vision blurred [Recovering/Resolving]
  - Headache [Recovering/Resolving]
  - Peripheral swelling [Unknown]
  - Anxiety [Recovering/Resolving]
  - Dysarthria [Recovering/Resolving]
  - Hunger [Recovering/Resolving]
  - Tremor [Recovering/Resolving]
  - Blood potassium decreased [Recovering/Resolving]
  - Irritability [Recovering/Resolving]
  - Mood altered [Recovering/Resolving]
  - Blood glucose decreased [Recovering/Resolving]
  - Blood glucose increased [Recovered/Resolved]
  - Product quality issue [Unknown]
